APPROVED DRUG PRODUCT: HALDOL
Active Ingredient: HALOPERIDOL
Strength: 2MG **Federal Register determination that product was not discontinued or withdrawn for safety or effectiveness reasons**
Dosage Form/Route: TABLET;ORAL
Application: N015921 | Product #003
Applicant: ORTHO MCNEIL PHARMACEUTICAL
Approved: Approved Prior to Jan 1, 1982 | RLD: Yes | RS: No | Type: DISCN